FAERS Safety Report 6907929-0 (Version None)
Quarter: 2010Q3

REPORT INFORMATION
  Report Type: 
  Country: None (occurrence: None)
  Receive Date: 20100805
  Receipt Date: 20100730
  Transmission Date: 20110219
  Serious: Yes (Life-Threatening)
  Sender: FDA-Public Use
  Company Number: FR-MPIJNJ-2010-03445

PATIENT

DRUGS (20)
  1. VELCADE [Suspect]
     Indication: MULTIPLE MYELOMA
     Dosage: 1.3 MG/M2, UNK
     Route: 065
     Dates: start: 20080825, end: 20080904
  2. VELCADE [Suspect]
     Dosage: 1.0 MG/M2, UNK
     Route: 065
     Dates: start: 20080915, end: 20081201
  3. VELCADE [Suspect]
     Dosage: 0.7 UNK, UNK
     Route: 065
     Dates: start: 20090108, end: 20090119
  4. DEXAMETHASONE [Concomitant]
     Indication: MULTIPLE MYELOMA
     Dosage: 600 MG, UNK
     Route: 042
     Dates: start: 20080825, end: 20081102
  5. DEXAMETHASONE [Concomitant]
     Dosage: 40 UNK, UNK
     Route: 048
     Dates: start: 20081125, end: 20090108
  6. CYCLOPHOSPHAMIDE [Concomitant]
     Indication: MULTIPLE MYELOMA
     Dosage: 40 MG, UNK
     Route: 048
     Dates: start: 20080825, end: 20081124
  7. DILTIAZEM [Concomitant]
     Dosage: UNK
     Route: 048
  8. METFORMIN HCL [Concomitant]
     Dosage: UNK
     Route: 048
  9. SOTALEX [Concomitant]
     Dosage: UNK
  10. ESCITALOPRAM OXALATE [Concomitant]
     Dosage: UNK
  11. CLASTOBAN [Concomitant]
     Dosage: UNK
     Dates: start: 20080819
  12. CEFTRIAXON [Concomitant]
     Dosage: UNK
     Route: 042
     Dates: start: 20080930, end: 20081004
  13. VALACYCLOVIR [Concomitant]
     Dosage: UNK
     Route: 048
     Dates: start: 20080930, end: 20081004
  14. VALACYCLOVIR [Concomitant]
     Dosage: UNK
     Route: 048
     Dates: start: 20081124
  15. LEVOFLOXACIN [Concomitant]
     Dosage: UNK
     Route: 048
     Dates: start: 20080930, end: 20081006
  16. LEVOFLOXACIN [Concomitant]
     Dosage: UNK
     Route: 048
     Dates: start: 20081201, end: 20081205
  17. PREDNISONE [Concomitant]
     Dosage: UNK
     Route: 048
     Dates: start: 20081006, end: 20081012
  18. AERIUS                             /01398501/ [Concomitant]
     Dosage: UNK
     Dates: start: 20081006, end: 20081013
  19. EPOGEN [Concomitant]
     Dosage: UNK
     Dates: start: 20081124, end: 20090101
  20. AUGMENTIN '125' [Concomitant]
     Dosage: UNK
     Dates: start: 20081201, end: 20081205

REACTIONS (1)
  - THROMBOCYTOPENIA [None]
